FAERS Safety Report 6495395-1 (Version None)
Quarter: 2009Q4

REPORT INFORMATION
  Report Type: 
  Country: None (occurrence: None)
  Receive Date: 20091214
  Receipt Date: 20090618
  Transmission Date: 20100525
  Serious: Yes (Death)
  Sender: FDA-Public Use
  Company Number: US-BRISTOL-MYERS SQUIBB COMPANY-14664700

PATIENT
  Age: 55 Year

DRUGS (5)
  1. ABILIFY [Suspect]
     Indication: BIPOLAR DISORDER
     Route: 048
     Dates: start: 20090105
  2. SEROQUEL [Suspect]
     Dosage: 2 TABS Q HS
  3. EFFEXOR XR [Suspect]
     Dosage: 1DF: 150(UNIT NOT SPECIFIED)2 TABS QD
  4. XANAX [Suspect]
  5. ARICEPT [Suspect]

REACTIONS (1)
  - NEUROLEPTIC MALIGNANT SYNDROME [None]
